FAERS Safety Report 20161882 (Version 1)
Quarter: 2021Q4

REPORT INFORMATION
  Report Type: Spontaneous
  Country: CN (occurrence: CN)
  Receive Date: 20211208
  Receipt Date: 20211208
  Transmission Date: 20220303
  Serious: Yes (Hospitalization)
  Sender: FDA-Public Use
  Company Number: CN-ELI_LILLY_AND_COMPANY-CN202111012048

PATIENT
  Sex: Male
  Weight: 80 kg

DRUGS (2)
  1. INSULIN LISPRO [Suspect]
     Active Substance: INSULIN LISPRO
     Indication: Type 2 diabetes mellitus
     Dosage: 6 INTERNATIONAL UNIT, TID
     Route: 058
     Dates: start: 20211110, end: 20211115
  2. TORSEMIDE [Suspect]
     Active Substance: TORSEMIDE
     Indication: Cardiac failure acute
     Dosage: 20 MG, BID
     Route: 041
     Dates: start: 20211110, end: 20211117

REACTIONS (6)
  - Cardiac failure acute [Recovering/Resolving]
  - Diabetic ketoacidosis [Recovering/Resolving]
  - Diabetes mellitus inadequate control [Recovering/Resolving]
  - Pleural effusion [Recovering/Resolving]
  - Oedema peripheral [Recovering/Resolving]
  - Hypokalaemia [Recovering/Resolving]
